FAERS Safety Report 4676932-6 (Version None)
Quarter: 2005Q2

REPORT INFORMATION
  Report Type: 
  Country: None (occurrence: None)
  Receive Date: 20050530
  Receipt Date: 20050217
  Transmission Date: 20051028
  Serious: Yes (Other)
  Sender: FDA-Public Use
  Company Number: PHBS2005IT02558

PATIENT
  Age: 67 Year
  Sex: Female

DRUGS (6)
  1. PAMIDRONATE DISODIUM [Suspect]
     Indication: BREAST CANCER
     Dosage: UNK, UNK
     Route: 042
  2. ZOLEDRONIC ACID [Suspect]
     Indication: BREAST CANCER
     Dosage: UNK, UNK
     Route: 042
  3. GEMZAR [Concomitant]
     Route: 065
  4. TAXOL [Concomitant]
     Route: 065
  5. TRASTUZUMAB [Concomitant]
     Route: 065
  6. STEROIDS NOS [Concomitant]
     Dosage: LONG-TERM
     Route: 065

REACTIONS (5)
  - ASEPTIC NECROSIS BONE [None]
  - DENTAL TREATMENT [None]
  - OSTEONECROSIS [None]
  - OSTEOPETROSIS [None]
  - WOUND DEBRIDEMENT [None]
